FAERS Safety Report 15720571 (Version 1)
Quarter: 2018Q4

REPORT INFORMATION
  Report Type: Spontaneous
  Country: FR (occurrence: FR)
  Receive Date: 20181213
  Receipt Date: 20181213
  Transmission Date: 20190205
  Serious: Yes (Hospitalization)
  Sender: FDA-Public Use
  Company Number: FR-009507513-1812FRA003413

PATIENT
  Age: 52 Year
  Sex: Female

DRUGS (9)
  1. CORGARD [Concomitant]
     Active Substance: NADOLOL
     Dosage: SCORED TABLET
  2. STAGID [Concomitant]
     Active Substance: METFORMIN PAMOATE
     Dosage: SCORED TABLET
  3. INEXIUM (ESOMEPRAZOLE MAGNESIUM) [Concomitant]
     Active Substance: ESOMEPRAZOLE MAGNESIUM
     Dosage: GASTRO-RESISTANT TABLET
  4. BACLOFEN. [Concomitant]
     Active Substance: BACLOFEN
  5. QUETIAPINE FUMARATE. [Suspect]
     Active Substance: QUETIAPINE FUMARATE
     Indication: MIXED ANXIETY AND DEPRESSIVE DISORDER
     Dosage: PROLONGED RELEASE TABLET; 50 MILLIGRAM, QD
     Route: 048
     Dates: start: 20170518, end: 20170525
  6. SIMVASTATIN. [Suspect]
     Active Substance: SIMVASTATIN
     Indication: DYSLIPIDAEMIA
     Dosage: 20 MILLIGRAM, QD
     Route: 048
     Dates: end: 20170527
  7. FLECTOR [Suspect]
     Active Substance: DICLOFENAC EPOLAMINE
     Indication: BACK PAIN
     Route: 003
     Dates: start: 20170523, end: 20170526
  8. TELMISARTAN. [Concomitant]
     Active Substance: TELMISARTAN
  9. FLUOXETIN [Concomitant]
     Active Substance: FLUOXETINE HYDROCHLORIDE

REACTIONS (5)
  - Pruritus [Recovered/Resolved]
  - Face oedema [Recovered/Resolved]
  - Eczema [Recovered/Resolved]
  - Rash generalised [Recovered/Resolved]
  - Erythema [Recovered/Resolved]

NARRATIVE: CASE EVENT DATE: 20170526
